FAERS Safety Report 24387547 (Version 1)
Quarter: 2024Q4

REPORT INFORMATION
  Report Type: Spontaneous
  Country: US (occurrence: None)
  Receive Date: 20241001
  Receipt Date: 20241001
  Transmission Date: 20250114
  Serious: Yes (Hospitalization)
  Sender: Public
  Company Number: None

PATIENT
  Age: 76 Year
  Sex: Male
  Weight: 64 kg

DRUGS (1)
  1. APIXABAN [Suspect]
     Active Substance: APIXABAN
     Indication: Atrial fibrillation
     Dosage: FREQUENCY : TWICE A DAY;?
     Route: 048
     Dates: start: 20231012, end: 20231222

REACTIONS (5)
  - Gastrointestinal haemorrhage [None]
  - Anaemia [None]
  - Haemorrhage [None]
  - Orthostatic hypotension [None]
  - Red blood cell transfusion [None]

NARRATIVE: CASE EVENT DATE: 20231207
